FAERS Safety Report 14490988 (Version 7)
Quarter: 2019Q4

REPORT INFORMATION
  Report Type: Spontaneous
  Country: US (occurrence: US)
  Receive Date: 20180206
  Receipt Date: 20191118
  Transmission Date: 20200122
  Serious: Yes (Other)
  Sender: FDA-Public Use
  Company Number: US-PFIZER INC-2018048327

PATIENT
  Age: 58 Year
  Sex: Female

DRUGS (13)
  1. IBRANCE [Suspect]
     Active Substance: PALBOCICLIB
     Indication: MENINGIOMA MALIGNANT
     Dosage: 100 MG, CYCLIC; (TAKE 1 CAPSULE BY MOUTH DAILY ON DAYS 1 THROUGH 21 OF A 28-DAY TREATMENT CYCLE)
     Route: 048
     Dates: start: 20171205
  2. LETROZOLE. [Concomitant]
     Active Substance: LETROZOLE
     Dosage: 2.5 MG, UNK
  3. PERJETA [Concomitant]
     Active Substance: PERTUZUMAB
     Dosage: UNK
  4. IBRANCE [Suspect]
     Active Substance: PALBOCICLIB
     Indication: BONE NEOPLASM
     Dosage: 125 MG, CYCLIC (TAKE 1 CAPSULE BY MOUTH EVERY DAY ON DAYS 1-21 EVERY 28 DAYS)
     Route: 048
  5. IBRANCE [Suspect]
     Active Substance: PALBOCICLIB
     Indication: BREAST CANCER FEMALE
     Dosage: 100 MG, CYCLIC; (TAKE 1 CAPSULE BY MOUTH DAILY ON DAYS 1 THROUGH 21 OF A 28-DAY TREATMENT CYCLE)
     Route: 048
     Dates: start: 20180319
  6. ZOMETA [Concomitant]
     Active Substance: ZOLEDRONIC ACID
     Dosage: UNK
  7. AIRBORNE [Concomitant]
     Active Substance: HERBALS\MINERALS\VITAMINS
     Dosage: UNK
  8. LISINOPRIL. [Concomitant]
     Active Substance: LISINOPRIL
     Dosage: 40 MG, UNK
  9. HERCEPTIN [Concomitant]
     Active Substance: TRASTUZUMAB
     Dosage: 440 MG, UNK (SOL)
  10. MUCINEX FAST MAX COLD + SINUS [Concomitant]
     Dosage: UNK (GUAIFENESIN-5, PARACETAMOL-10, PHENYLEPHRINE HYDROCHLORIDE-200)
  11. BIOTIN [Concomitant]
     Active Substance: BIOTIN
     Dosage: 5 MG, UNK
  12. ZYRTEC [Concomitant]
     Active Substance: CETIRIZINE HYDROCHLORIDE
     Dosage: 10 MG, UNK
  13. CALCIUM [Concomitant]
     Active Substance: CALCIUM
     Dosage: 600 MG, UNK

REACTIONS (11)
  - Diverticulitis [Unknown]
  - Depression [Unknown]
  - White blood cell count decreased [Not Recovered/Not Resolved]
  - Diarrhoea [Not Recovered/Not Resolved]
  - Dyspnoea [Not Recovered/Not Resolved]
  - Spinal disorder [Unknown]
  - Fatigue [Not Recovered/Not Resolved]
  - Sinus disorder [Not Recovered/Not Resolved]
  - Back pain [Unknown]
  - Epistaxis [Not Recovered/Not Resolved]
  - Intervertebral disc protrusion [Unknown]

NARRATIVE: CASE EVENT DATE: 2018
